FAERS Safety Report 7742931-0 (Version None)
Quarter: 2011Q3

REPORT INFORMATION
  Report Type: 
  Country: None (occurrence: None)
  Receive Date: 20110912
  Receipt Date: 20110829
  Transmission Date: 20111222
  Serious: Yes (Hospitalization, Other)
  Sender: FDA-Public Use
  Company Number: US-ELI_LILLY_AND_COMPANY-US201103008563

PATIENT
  Sex: Female

DRUGS (13)
  1. GLUCOSAMINE [Concomitant]
  2. FORTEO [Suspect]
     Indication: OSTEOPOROSIS
     Dosage: 20 UG, QD
     Route: 058
     Dates: start: 20101230
  3. FORTEO [Suspect]
     Dosage: 20 UG, QD
     Route: 058
  4. CALCIUM CARBONATE [Concomitant]
  5. FORTEO [Suspect]
     Dosage: 20 UG, QD
     Route: 058
  6. ASPIRIN [Concomitant]
     Dosage: UNK, QD
  7. FORTEO [Suspect]
     Dosage: 20 UG, QD
     Route: 058
     Dates: start: 20110304
  8. VITAMIN TAB [Concomitant]
     Dosage: UNK, QD
  9. FORTEO [Suspect]
     Dosage: 20 UG, QD
     Route: 058
  10. FORTEO [Suspect]
     Dosage: 20 UG, QD
     Route: 058
  11. VITAMIN D [Concomitant]
  12. FISH OIL [Concomitant]
  13. NAPROXEN (ALEVE) [Concomitant]
     Indication: MYALGIA
     Dosage: UNK, QD

REACTIONS (9)
  - ARTHRALGIA [None]
  - ARTHRITIS [None]
  - MOVEMENT DISORDER [None]
  - IMPAIRED HEALING [None]
  - MUSCLE SPASMS [None]
  - FALL [None]
  - MYALGIA [None]
  - PAIN IN EXTREMITY [None]
  - HIP FRACTURE [None]
